FAERS Safety Report 9752971 (Version 1)
Quarter: 2013Q4

REPORT INFORMATION
  Report Type: Spontaneous
  Country: US (occurrence: None)
  Receive Date: 20131211
  Receipt Date: 20131211
  Transmission Date: 20140711
  Serious: Yes (Other)
  Sender: FDA-Public Use
  Company Number: HA13-439-AE

PATIENT
  Age: 52 Year
  Sex: Female
  Weight: 96.1 kg

DRUGS (10)
  1. NAPROXEN [Suspect]
     Indication: OSTEOARTHRITIS
     Route: 048
     Dates: start: 20130312, end: 20130924
  2. CELECOXIB; IBUPROFEN; PLACEBO [Suspect]
     Route: 048
     Dates: start: 20130312, end: 20130924
  3. DULOXETINE HYDROCHLORIDE [Concomitant]
  4. FLUTICASONE PROPIONATE (FLOVENT) [Concomitant]
  5. BECLOMETASONE DIPROPIONATE (OVAR) [Concomitant]
  6. OXYMORPHONE HYDROCHLORIDE (OPANA) [Concomitant]
  7. OXYCODONE HYDROCHLORIDE [Concomitant]
  8. PARACETAMOL (PERCOCET) [Concomitant]
  9. TIOTROPIUM BROMIDE (SPIRIVA) [Concomitant]
  10. NEXIUM [Concomitant]

REACTIONS (1)
  - Invasive ductal breast carcinoma [None]
